FAERS Safety Report 10133688 (Version 1)
Quarter: 2014Q2

REPORT INFORMATION
  Report Type: Spontaneous
  Country: US (occurrence: US)
  Receive Date: 20140428
  Receipt Date: 20140428
  Transmission Date: 20141212
  Serious: No
  Sender: FDA-Public Use
  Company Number: US-B.I. PHARMACEUTICALS,INC./RIDGEFIELD-2014-BI-17929BP

PATIENT
  Age: 83 Year
  Sex: Female

DRUGS (1)
  1. ZANTAC (RANITIDINE HYDROCHLORIDE) [Suspect]
     Indication: GASTROOESOPHAGEAL REFLUX DISEASE
     Route: 048
     Dates: start: 20140417, end: 20140417

REACTIONS (3)
  - Odynophagia [Recovered/Resolved]
  - Sensation of foreign body [Not Recovered/Not Resolved]
  - Foreign body [Recovered/Resolved]
